FAERS Safety Report 7473692-0 (Version None)
Quarter: 2011Q1

REPORT INFORMATION
  Report Type: 
  Country: None (occurrence: None)
  Receive Date: 20110302
  Receipt Date: 20100723
  Transmission Date: 20110831
  Serious: Yes (Hospitalization)
  Sender: FDA-Public Use
  Company Number: 163-21880-10070422

PATIENT
  Sex: Male

DRUGS (3)
  1. REVLIMID [Suspect]
     Indication: MULTIPLE MYELOMA
     Dosage: 25 MG, 1 IN 1 D, PO; 10 MG, 1 IN 1 D, PO; 25 MG, 1 IN 1 D, PO
     Route: 048
     Dates: start: 20100401, end: 20100401
  2. REVLIMID [Suspect]
     Indication: MULTIPLE MYELOMA
     Dosage: 25 MG, 1 IN 1 D, PO; 10 MG, 1 IN 1 D, PO; 25 MG, 1 IN 1 D, PO
     Route: 048
     Dates: start: 20100401
  3. REVLIMID [Suspect]
     Indication: MULTIPLE MYELOMA
     Dosage: 25 MG, 1 IN 1 D, PO; 10 MG, 1 IN 1 D, PO; 25 MG, 1 IN 1 D, PO
     Route: 048
     Dates: start: 20090601, end: 20090701

REACTIONS (1)
  - ANAL FISTULA [None]
